FAERS Safety Report 5163308-0 (Version None)
Quarter: 2006Q4

REPORT INFORMATION
  Report Type: 
  Country: None (occurrence: None)
  Receive Date: 20061204
  Receipt Date: 20061120
  Transmission Date: 20070319
  Serious: Yes (Other)
  Sender: FDA-Public Use
  Company Number: PHEH2006US14573

PATIENT
  Age: 46 Year
  Sex: Male
  Weight: 102.04 kg

DRUGS (6)
  1. DIOVAN [Suspect]
     Indication: HYPERTENSION
     Dosage: 160MG, UNK
     Dates: start: 20061020, end: 20061023
  2. DIOVAN [Suspect]
     Dosage: 320MG, UNK
     Dates: start: 20061023, end: 20061118
  3. METFORMIN [Suspect]
     Dates: start: 20060728, end: 20061117
  4. STARLIX [Suspect]
     Dosage: UNK, UNK
     Dates: start: 20060728, end: 20061117
  5. TOPROL-XL [Concomitant]
     Indication: HYPERTENSION
     Dosage: UNK, UNK
     Dates: start: 20060101
  6. PLAVIX [Concomitant]
     Dates: start: 20060101

REACTIONS (2)
  - BLOOD GLUCOSE INCREASED [None]
  - BLOOD PRESSURE INADEQUATELY CONTROLLED [None]
